FAERS Safety Report 9182896 (Version 1)
Quarter: 2013Q1

REPORT INFORMATION
  Report Type: Spontaneous
  Country: US (occurrence: US)
  Receive Date: 20130322
  Receipt Date: 20130322
  Transmission Date: 20140127
  Serious: No
  Sender: FDA-Public Use
  Company Number: US-BRISTOL-MYERS SQUIBB COMPANY-16412157

PATIENT
  Age: 63 Year
  Sex: Male

DRUGS (3)
  1. ERBITUX [Suspect]
     Indication: COLON CANCER
  2. TETRACYCLINE [Suspect]
  3. IRINOTECAN [Concomitant]

REACTIONS (7)
  - Stomatitis [Unknown]
  - Nasal ulcer [Unknown]
  - Erythema [Unknown]
  - Haemorrhage [Unknown]
  - Diarrhoea [Unknown]
  - Decreased appetite [Unknown]
  - Fatigue [Unknown]
